FAERS Safety Report 14340887 (Version 1)
Quarter: 2018Q1

REPORT INFORMATION
  Report Type: Spontaneous
  Country: MY (occurrence: MY)
  Receive Date: 20180102
  Receipt Date: 20180102
  Transmission Date: 20180509
  Serious: Yes (Other)
  Sender: FDA-Public Use
  Company Number: MY-SUN PHARMACEUTICAL INDUSTRIES LTD-2017R3-158070

PATIENT
  Age: 46 Year
  Sex: Female

DRUGS (1)
  1. STORVAS C [Suspect]
     Active Substance: ATORVASTATIN CALCIUM
     Indication: HYPERLIPIDAEMIA
     Route: 048

REACTIONS (4)
  - Blood creatine phosphokinase increased [Recovering/Resolving]
  - Acute kidney injury [Recovering/Resolving]
  - Myalgia [Recovering/Resolving]
  - Alanine aminotransferase increased [Recovering/Resolving]
